FAERS Safety Report 9618130 (Version 1)
Quarter: 2013Q4

REPORT INFORMATION
  Report Type: Report from Study
  Country: JP (occurrence: JP)
  Receive Date: 20131014
  Receipt Date: 20131014
  Transmission Date: 20140711
  Serious: Yes (Hospitalization)
  Sender: FDA-Public Use
  Company Number: JP-009507513-1310JPN003933

PATIENT
  Age: 61 Year
  Sex: Male
  Weight: 70 kg

DRUGS (14)
  1. TEMODAL [Suspect]
     Indication: ANAPLASTIC ASTROCYTOMA
     Dosage: 140 MG, QD
     Route: 048
     Dates: start: 20120409, end: 20120518
  2. TEMODAL [Suspect]
     Dosage: 140 MG, QD
     Route: 048
     Dates: start: 20120626, end: 20120630
  3. TEMODAL [Suspect]
     Dosage: 200 MG, QD
     Route: 048
     Dates: start: 20120724, end: 20120728
  4. TEMODAL [Suspect]
     Dosage: 260 MG, QD
     Route: 048
     Dates: start: 20120821, end: 20120825
  5. TEMODAL [Suspect]
     Dosage: 320 MG, QD
     Route: 048
     Dates: start: 20120918, end: 20120922
  6. TEMODAL [Suspect]
     Dosage: 260 MG, QD
     Route: 048
     Dates: start: 20121016, end: 20121020
  7. TEMODAL [Suspect]
     Dosage: 260 MG, QD
     Route: 048
     Dates: start: 20121113, end: 20121117
  8. TEMODAL [Suspect]
     Dosage: 260 MG, QD
     Route: 048
     Dates: start: 20121211, end: 20121215
  9. TEMODAL [Suspect]
     Dosage: 260 MG, QD
     Route: 048
     Dates: start: 20130108, end: 20130112
  10. TEMODAL [Suspect]
     Dosage: 260 MG, QD
     Route: 048
     Dates: start: 20130205, end: 20130209
  11. BACTRAMIN [Suspect]
     Indication: ANTIFUNGAL PROPHYLAXIS
     Dosage: DAILY DOSAGE UNKNOWN, FORMULATION: POR
     Route: 048
     Dates: start: 20120409, end: 20120508
  12. FUROSEMIDE [Concomitant]
     Dosage: DAILY DOSAGE UNKNOWN, ROUTE: IV UNSPECIFIED
     Dates: start: 20120505, end: 20120506
  13. CANRENOATE POTASSIUM [Concomitant]
     Dosage: DAILY DOSAGE UNKNOWN, ROUTE: IV UNSPECIFIED
     Dates: start: 20120505, end: 20120506
  14. TAKEPRON [Concomitant]
     Dosage: DAILY DOSAGE UNKNOWN, FORMULATION: POR
     Route: 048

REACTIONS (1)
  - Cardiac failure [Recovered/Resolved]
